FAERS Safety Report 5963481-8 (Version None)
Quarter: 2008Q4

REPORT INFORMATION
  Report Type: 
  Country: None (occurrence: None)
  Receive Date: 20081120
  Receipt Date: 20081110
  Transmission Date: 20090506
  Serious: Yes (Hospitalization)
  Sender: FDA-Public Use
  Company Number: 237070J08USA

PATIENT
  Age: 75 Year
  Sex: Female
  Weight: 48 kg

DRUGS (3)
  1. REBIF [Suspect]
     Indication: MULTIPLE SCLEROSIS
     Dosage: 22 MCG, 3 IN 1 WEEKS, SUBCUTANEOUS
     Route: 058
     Dates: start: 20020730
  2. ZANAFLEX [Concomitant]
  3. GABAPENTIN (GABPAPENTIN) [Concomitant]

REACTIONS (5)
  - CYSTOCELE [None]
  - POLLAKIURIA [None]
  - RECTOCELE [None]
  - URINARY TRACT INFECTION [None]
  - UTERINE PROLAPSE [None]
